FAERS Safety Report 4593916-7 (Version None)
Quarter: 2005Q1

REPORT INFORMATION
  Report Type: 
  Country: None (occurrence: None)
  Receive Date: 20050222
  Receipt Date: 20050210
  Transmission Date: 20050727
  Serious: Yes (Other)
  Sender: FDA-Public Use
  Company Number: 200410908BCA

PATIENT
  Sex: Female

DRUGS (2)
  1. GAMUNEX [Suspect]
     Dosage: INTRAVENOUS
     Route: 042
     Dates: start: 20040228
  2. GAMIMUNE N 10% [Concomitant]

REACTIONS (2)
  - CATHETER RELATED COMPLICATION [None]
  - THROMBOSIS [None]
